FAERS Safety Report 15733164 (Version 3)
Quarter: 2018Q4

REPORT INFORMATION
  Report Type: Spontaneous
  Country: HR (occurrence: HR)
  Receive Date: 20181218
  Receipt Date: 20181231
  Transmission Date: 20190205
  Serious: Yes (Hospitalization)
  Sender: FDA-Public Use
  Company Number: HR-ROCHE-2231282

PATIENT
  Age: 60 Year
  Sex: Male
  Weight: 70 kg

DRUGS (2)
  1. COTELLIC [Suspect]
     Active Substance: COBIMETINIB
     Indication: MALIGNANT MELANOMA
     Dosage: 3TBL A 20 PER DAY/ CYCLE IS 21 DAYS
     Route: 048
     Dates: start: 20181015, end: 20181212
  2. ZELBORAF [Suspect]
     Active Substance: VEMURAFENIB
     Indication: MALIGNANT MELANOMA
     Dosage: 2X4 TABLET A 240 MG
     Route: 048
     Dates: start: 20181015, end: 20181212

REACTIONS (2)
  - Electrocardiogram QT prolonged [Not Recovered/Not Resolved]
  - Cytotoxic cardiomyopathy [Recovering/Resolving]

NARRATIVE: CASE EVENT DATE: 20181205
